FAERS Safety Report 5085841-2 (Version None)
Quarter: 2006Q3

REPORT INFORMATION
  Report Type: 
  Country: None (occurrence: None)
  Receive Date: 20060817
  Receipt Date: 20060811
  Transmission Date: 20061208
  Serious: Yes (Other)
  Sender: FDA-Public Use
  Company Number: 2006-04468

PATIENT
  Age: 64 Year
  Sex: Female
  Weight: 77.1 kg

DRUGS (10)
  1. METHYLPHENIDATE HYDROCHLORIDE (WATSON LABORATORIES) (METHYLPHENIDATE H [Suspect]
     Indication: SEDATION
     Dosage: 20 MG, DAILY, ORAL
     Route: 048
     Dates: start: 20060710
  2. TRILEPTAL [Concomitant]
  3. COREG [Concomitant]
  4. DIGOXIN [Concomitant]
  5. FOLIC ACID [Concomitant]
  6. LANTUS [Concomitant]
  7. COUMADIN [Concomitant]
  8. LIPITOR [Concomitant]
  9. MACRODANTIN [Concomitant]
  10. HUMALOG [Concomitant]

REACTIONS (5)
  - APHASIA [None]
  - CONVULSION [None]
  - DRUG INEFFECTIVE [None]
  - PAROSMIA [None]
  - PHARMACEUTICAL PRODUCT COMPLAINT [None]
